FAERS Safety Report 12268633 (Version 1)
Quarter: 2016Q2

REPORT INFORMATION
  Report Type: Spontaneous
  Country: JP (occurrence: JP)
  Receive Date: 20160414
  Receipt Date: 20160414
  Transmission Date: 20160815
  Serious: Yes (Other)
  Sender: FDA-Public Use
  Company Number: JP-TEVA-651182ISR

PATIENT
  Age: 61 Year
  Sex: Female

DRUGS (2)
  1. IRINOTECAN [Suspect]
     Active Substance: IRINOTECAN
     Indication: COLON CANCER METASTATIC
     Dosage: 24 DOSES OF 150 MG/M2 EVERY OTHER WEEK AS 3RD LINE THERAPY
     Route: 065
  2. CETUXIMAB [Suspect]
     Active Substance: CETUXIMAB
     Indication: COLON CANCER METASTATIC
     Dosage: 24 DOSES AS 3RD LINE THERAPY
     Route: 065

REACTIONS (4)
  - Alopecia [Unknown]
  - Paronychia [Unknown]
  - Neutropenia [Unknown]
  - Dermatitis acneiform [Unknown]
